FAERS Safety Report 8320100-3 (Version None)
Quarter: 2012Q2

REPORT INFORMATION
  Report Type: 
  Country: None (occurrence: None)
  Receive Date: 20120429
  Receipt Date: 20120418
  Transmission Date: 20120825
  Serious: Yes (Other)
  Sender: FDA-Public Use
  Company Number: US-ELI_LILLY_AND_COMPANY-US201201008731

PATIENT
  Sex: Female
  Weight: 97 kg

DRUGS (2)
  1. COUMADIN [Concomitant]
     Indication: ANTICOAGULANT THERAPY
  2. FORTEO [Suspect]
     Dosage: 20 UG, QD
     Route: 058
     Dates: start: 20110316

REACTIONS (4)
  - CONTUSION [None]
  - URINARY TRACT INFECTION [None]
  - PLATELET COUNT DECREASED [None]
  - HIP ARTHROPLASTY [None]
